FAERS Safety Report 25352496 (Version 1)
Quarter: 2025Q2

REPORT INFORMATION
  Report Type: Spontaneous
  Country: FR (occurrence: FR)
  Receive Date: 20250523
  Receipt Date: 20250523
  Transmission Date: 20250717
  Serious: Yes (Congenital Anomaly)
  Sender: TEVA
  Company Number: None

PATIENT
  Age: 0 Day
  Sex: Female
  Weight: 2.035 kg

DRUGS (3)
  1. METFORMIN [Suspect]
     Active Substance: METFORMIN HYDROCHLORIDE
     Indication: Diabetes mellitus
     Route: 064
     Dates: start: 202010
  2. OLMESARTAN [Suspect]
     Active Substance: OLMESARTAN
     Indication: Hypertension
     Route: 064
     Dates: start: 202010
  3. INSULIN NOS [Suspect]
     Active Substance: INSULIN NOS
     Indication: Diabetes mellitus
     Route: 064
     Dates: start: 202105

REACTIONS (3)
  - Cerebral ischaemia [Not Recovered/Not Resolved]
  - Maternal exposure during pregnancy [Not Recovered/Not Resolved]
  - Renal failure neonatal [Recovered/Resolved]

NARRATIVE: CASE EVENT DATE: 20210621
